FAERS Safety Report 8312579-8 (Version None)
Quarter: 2012Q2

REPORT INFORMATION
  Report Type: 
  Country: None (occurrence: None)
  Receive Date: 20120425
  Receipt Date: 20120425
  Transmission Date: 20120825
  Serious: Yes (Life-Threatening, Hospitalization, Other)
  Sender: FDA-Public Use
  Company Number: None

PATIENT

DRUGS (1)
  1. LISINOPRIL [Suspect]
     Indication: HYPERTENSION
     Dosage: 20 MILLIGRAMS BLISTER PACK
     Dates: start: 20120316, end: 20120316

REACTIONS (7)
  - PARAESTHESIA ORAL [None]
  - DYSPNOEA [None]
  - HEART RATE INCREASED [None]
  - SWELLING FACE [None]
  - LIP SWELLING [None]
  - DRUG HYPERSENSITIVITY [None]
  - PHARYNGEAL OEDEMA [None]
